FAERS Safety Report 17577111 (Version 2)
Quarter: 2020Q2

REPORT INFORMATION
  Report Type: Spontaneous
  Country: US (occurrence: US)
  Receive Date: 20200324
  Receipt Date: 20200409
  Transmission Date: 20200713
  Serious: Yes (Hospitalization, Other)
  Sender: FDA-Public Use
  Company Number: US-GILEAD-2020-0456249

PATIENT
  Sex: Male
  Weight: 82.7 kg

DRUGS (29)
  1. YESCARTA [Suspect]
     Active Substance: AXICABTAGENE CILOLEUCEL
     Indication: DIFFUSE LARGE B-CELL LYMPHOMA REFRACTORY
     Dosage: 1 DOSAGE FORM (SINGLE DOSE)
     Route: 042
     Dates: start: 20190805, end: 20190805
  2. LEVETIRACETAM. [Concomitant]
     Active Substance: LEVETIRACETAM
  3. DULOXETINE. [Concomitant]
     Active Substance: DULOXETINE
  4. LOSARTAN AND HYDROCHLOROTHIAZIDE [Concomitant]
     Active Substance: HYDROCHLOROTHIAZIDE\LOSARTAN POTASSIUM
  5. CYCLOPHOSPHAMIDE. [Concomitant]
     Active Substance: CYCLOPHOSPHAMIDE
     Dosage: UNK
     Dates: start: 20190731, end: 20190802
  6. AMLODIPINE [Concomitant]
     Active Substance: AMLODIPINE BESYLATE
  7. CHLORTHALIDONE. [Concomitant]
     Active Substance: CHLORTHALIDONE
  8. MELATONIN [Concomitant]
     Active Substance: MELATONIN
  9. PANTOPRAZOLE [Concomitant]
     Active Substance: PANTOPRAZOLE
  10. PAROXETINE. [Concomitant]
     Active Substance: PAROXETINE
  11. HUMALOG JUNIOR KWIKPEN [Concomitant]
     Active Substance: INSULIN LISPRO
     Dosage: 100 U/ML
  12. DOXAZOSIN [Concomitant]
     Active Substance: DOXAZOSIN MESYLATE
  13. FLUDARABINE [Concomitant]
     Active Substance: FLUDARABINE PHOSPHATE
     Dosage: UNK
     Dates: start: 20190731, end: 20190802
  14. ENOXAPARIN [Concomitant]
     Active Substance: ENOXAPARIN
  15. GLUCAGON. [Concomitant]
     Active Substance: GLUCAGON
  16. INSULIN GLARGINE [Concomitant]
     Active Substance: INSULIN GLARGINE
  17. SPIRONOLACTONE. [Concomitant]
     Active Substance: SPIRONOLACTONE
  18. URSODIOL. [Concomitant]
     Active Substance: URSODIOL
  19. ONDANSETRON [Concomitant]
     Active Substance: ONDANSETRON
  20. POLYETHYLENE GLYCOL [Concomitant]
     Active Substance: POLYETHYLENE GLYCOLS
  21. LIDOCAINE. [Concomitant]
     Active Substance: LIDOCAINE
  22. ACYCLOVIR [ACICLOVIR] [Concomitant]
     Active Substance: ACYCLOVIR
  23. INSULIN LISPRO [Concomitant]
     Active Substance: INSULIN LISPRO
  24. OXYCODONE [Concomitant]
     Active Substance: OXYCODONE
  25. PENTAMIDINE [Concomitant]
     Active Substance: PENTAMIDINE
  26. METFORMIN [Concomitant]
     Active Substance: METFORMIN HYDROCHLORIDE
  27. TOLTERODINE [Concomitant]
     Active Substance: TOLTERODINE
  28. GABAPENTIN. [Concomitant]
     Active Substance: GABAPENTIN
  29. PROCHLORPERAZINE. [Concomitant]
     Active Substance: PROCHLORPERAZINE

REACTIONS (8)
  - Cytokine release syndrome [Recovered/Resolved]
  - Seizure [Unknown]
  - Neurotoxicity [Recovered/Resolved]
  - Thrombocytopenia [Unknown]
  - Neurotoxicity [Not Recovered/Not Resolved]
  - Hypotension [Recovered/Resolved]
  - Pyrexia [Recovered/Resolved]
  - Cytokine release syndrome [Unknown]

NARRATIVE: CASE EVENT DATE: 2019
